FAERS Safety Report 19195469 (Version 1)
Quarter: 2021Q2

REPORT INFORMATION
  Report Type: Spontaneous
  Country: JP (occurrence: JP)
  Receive Date: 20210429
  Receipt Date: 20210429
  Transmission Date: 20210717
  Serious: Yes (Hospitalization, Other)
  Sender: FDA-Public Use
  Company Number: JP-AMGEN-JPNSP2021063953

PATIENT
  Age: 9 Decade
  Sex: Male

DRUGS (1)
  1. G?LASTA [Suspect]
     Active Substance: PEGFILGRASTIM
     Indication: WHITE BLOOD CELL COUNT DECREASED
     Dosage: UNK
     Route: 058

REACTIONS (3)
  - Therapeutic procedure [Unknown]
  - Off label use [Unknown]
  - Takayasu^s arteritis [Recovering/Resolving]
